FAERS Safety Report 17240636 (Version 1)
Quarter: 2020Q1

REPORT INFORMATION
  Report Type: Spontaneous
  Country: ES (occurrence: ES)
  Receive Date: 20200107
  Receipt Date: 20200107
  Transmission Date: 20200409
  Serious: Yes (Death, Other)
  Sender: FDA-Public Use
  Company Number: ES-SCIEGEN PHARMACEUTICALS INC-2019SCILIT00399

PATIENT
  Age: 29 Year
  Sex: Male

DRUGS (4)
  1. NORDAZEPAM [Suspect]
     Active Substance: NORDAZEPAM
  2. OLANZAPINE. [Suspect]
     Active Substance: OLANZAPINE
  3. ALCOHOL. [Suspect]
     Active Substance: ALCOHOL
  4. FLUOXETINE [Suspect]
     Active Substance: FLUOXETINE HYDROCHLORIDE

REACTIONS (2)
  - Sudden death [Fatal]
  - Toxicity to various agents [Fatal]
